FAERS Safety Report 7860031-6 (Version None)
Quarter: 2011Q4

REPORT INFORMATION
  Report Type: 
  Country: None (occurrence: None)
  Receive Date: 20111025
  Receipt Date: 20110927
  Transmission Date: 20120403
  Serious: Yes (Other)
  Sender: FDA-Public Use
  Company Number: US-ZYDUS-000179

PATIENT

DRUGS (1)
  1. WARFARIN SODIUM [Suspect]
     Indication: HEART VALVE REPLACEMENT

REACTIONS (5)
  - CALCIPHYLAXIS [None]
  - PULMONARY CALCIFICATION [None]
  - DRUG INTERACTION [None]
  - CALCIFICATION METASTATIC [None]
  - METABOLIC DISORDER [None]
